FAERS Safety Report 24066901 (Version 1)
Quarter: 2024Q3

REPORT INFORMATION
  Report Type: Other
  Country: JP (occurrence: JP)
  Receive Date: 20240709
  Receipt Date: 20240709
  Transmission Date: 20241017
  Serious: Yes (Hospitalization, Other)
  Sender: OWLPHARMA CONSULTING
  Company Number: JP-Owlpharma Consulting, Lda.-2158965

PATIENT
  Age: 68 Year
  Sex: Male
  Weight: 80.0 kg

DRUGS (6)
  1. DEXMEDETOMIDINE [Suspect]
     Active Substance: DEXMEDETOMIDINE
     Indication: Sedation
     Route: 065
  2. PENTAZOCINE [Concomitant]
     Active Substance: PENTAZOCINE
  3. ROSUVASTATIN CALCIUM [Concomitant]
     Active Substance: ROSUVASTATIN CALCIUM
     Route: 065
  4. AZELNIDIPINE [Concomitant]
     Active Substance: AZELNIDIPINE
     Route: 065
  5. VALSARTAN [Concomitant]
     Active Substance: VALSARTAN
     Route: 065
  6. PROPOFOL [Concomitant]
     Active Substance: PROPOFOL
     Route: 065

REACTIONS (1)
  - Arteriospasm coronary [Recovered/Resolved]
